FAERS Safety Report 13795294 (Version 3)
Quarter: 2017Q4

REPORT INFORMATION
  Report Type: Report from Study
  Country: US (occurrence: US)
  Receive Date: 20170726
  Receipt Date: 20171215
  Transmission Date: 20180320
  Serious: Yes (Hospitalization, Other)
  Sender: FDA-Public Use
  Company Number: US-EISAI MEDICAL RESEARCH-EC-2017-029488

PATIENT
  Age: 64 Year
  Sex: Female
  Weight: 112 kg

DRUGS (19)
  1. DRONEDARONE [Concomitant]
     Active Substance: DRONEDARONE
  2. ASPIRIN. [Concomitant]
     Active Substance: ASPIRIN
  3. COLACE [Concomitant]
     Active Substance: DOCUSATE SODIUM
  4. IRBESARTAN. [Concomitant]
     Active Substance: IRBESARTAN
  5. ONDANSETRON [Concomitant]
     Active Substance: ONDANSETRON
  6. TRAMADOL. [Concomitant]
     Active Substance: TRAMADOL
  7. MAGNESIUM AMINO ACIDS CHELATE [Concomitant]
  8. LENVATINIB [Suspect]
     Active Substance: LENVATINIB
     Indication: ENDOMETRIAL CANCER RECURRENT
     Route: 048
     Dates: start: 20170516, end: 20170611
  9. FAMOTIDINE. [Concomitant]
     Active Substance: FAMOTIDINE
  10. CLARITIN [Concomitant]
     Active Substance: LORATADINE
  11. PEMBROLIZUMAB. [Suspect]
     Active Substance: PEMBROLIZUMAB
     Indication: ENDOMETRIAL CANCER RECURRENT
     Route: 041
     Dates: start: 20170516, end: 20170627
  12. METFORMIN [Concomitant]
     Active Substance: METFORMIN HYDROCHLORIDE
  13. AQUAPHOR [Concomitant]
     Active Substance: PETROLATUM
  14. TYLENOL [Concomitant]
     Active Substance: ACETAMINOPHEN
  15. VITAMIN D3 [Concomitant]
     Active Substance: CHOLECALCIFEROL
  16. DILTIAZEM HYDROCHLORIDE XT [Concomitant]
  17. METOPROLOL TARTRATE. [Concomitant]
     Active Substance: METOPROLOL TARTRATE
  18. IRON 100 PLUS [Concomitant]
     Active Substance: ASCORBIC ACID\CYANOCOBALAMIN\FOLIC ACID\IRON
  19. GLIPIZIDE. [Concomitant]
     Active Substance: GLIPIZIDE

REACTIONS (3)
  - Hypoalbuminaemia [Not Recovered/Not Resolved]
  - Proteinuria [Not Recovered/Not Resolved]
  - Acute kidney injury [Not Recovered/Not Resolved]

NARRATIVE: CASE EVENT DATE: 20170530
